FAERS Safety Report 4816500-6 (Version None)
Quarter: 2005Q4

REPORT INFORMATION
  Report Type: 
  Country: None (occurrence: None)
  Receive Date: 20051028
  Receipt Date: 20051014
  Transmission Date: 20060501
  Serious: Yes (Hospitalization)
  Sender: FDA-Public Use
  Company Number: 005874

PATIENT
  Age: 29 Year
  Sex: Female

DRUGS (1)
  1. NORDETTE-28 [Suspect]
     Indication: MENSTRUATION IRREGULAR
     Dosage: 1 TABLET, QD, ORAL
     Route: 048
     Dates: start: 19930101, end: 20050901

REACTIONS (3)
  - ABDOMINAL PAIN [None]
  - BENIGN HEPATIC NEOPLASM [None]
  - HAEMORRHOID OPERATION [None]
